FAERS Safety Report 9799459 (Version 1)
Quarter: 2014Q1

REPORT INFORMATION
  Report Type: Spontaneous
  Country: US (occurrence: None)
  Receive Date: 20140103
  Receipt Date: 20140103
  Transmission Date: 20141002
  Serious: No
  Sender: FDA-Public Use
  Company Number: None

PATIENT
  Sex: Female

DRUGS (1)
  1. FIORICET [Suspect]

REACTIONS (4)
  - Dysphagia [None]
  - Psychomotor hyperactivity [None]
  - Product taste abnormal [None]
  - Product physical issue [None]
